FAERS Safety Report 13903795 (Version 1)
Quarter: 2017Q3

REPORT INFORMATION
  Report Type: Report from Study
  Country: None (occurrence: GB)
  Receive Date: 20170824
  Receipt Date: 20170824
  Transmission Date: 20171127
  Serious: Yes (Hospitalization)
  Sender: FDA-Public Use
  Company Number: GB-ABBVIE-17P-167-2076224-00

PATIENT
  Sex: Male
  Weight: 72.8 kg

DRUGS (15)
  1. DIGOXIN. [Concomitant]
     Active Substance: DIGOXIN
     Indication: ATRIAL FIBRILLATION
     Route: 065
     Dates: start: 200701
  2. BISOPROLOL [Concomitant]
     Active Substance: BISOPROLOL
     Indication: HYPERTENSION
     Route: 065
     Dates: start: 201701
  3. ALLOPURINOL. [Concomitant]
     Active Substance: ALLOPURINOL
     Indication: PROPHYLAXIS
  4. PENICILLIN [Concomitant]
     Active Substance: PENICILLIN
     Indication: ANTIBIOTIC PROPHYLAXIS
  5. PARACETAMOL [Concomitant]
     Active Substance: ACETAMINOPHEN
     Indication: PAIN
     Route: 065
     Dates: start: 20160718
  6. BRINZDAMIDE [Concomitant]
     Indication: OCULAR HYPERTENSION
     Dosage: EYE DROPS
     Route: 047
  7. VENETOCLAX. [Suspect]
     Active Substance: VENETOCLAX
     Indication: CHRONIC LYMPHOCYTIC LEUKAEMIA REFRACTORY
     Route: 048
     Dates: start: 20160913
  8. IBRUTINIB [Suspect]
     Active Substance: IBRUTINIB
     Indication: CHRONIC LYMPHOCYTIC LEUKAEMIA REFRACTORY
     Route: 048
     Dates: start: 20160712
  9. PENICILLIN [Concomitant]
     Active Substance: PENICILLIN
     Indication: ANTIBIOTIC PROPHYLAXIS
     Route: 065
     Dates: start: 20170812
  10. IBRUTINIB [Suspect]
     Active Substance: IBRUTINIB
     Indication: CHRONIC LYMPHOCYTIC LEUKAEMIA RECURRENT
  11. FUROSEMIDE. [Concomitant]
     Active Substance: FUROSEMIDE
     Indication: ATRIAL FIBRILLATION
     Route: 065
  12. ACITRETIN. [Concomitant]
     Active Substance: ACITRETIN
     Indication: PSORIASIS
     Dosage: 10 MG AND 20 MG ON ALTERNATE DAYS
     Route: 065
     Dates: start: 20170807
  13. CLEXANE [Concomitant]
     Active Substance: ENOXAPARIN SODIUM
     Indication: THROMBOSIS PROPHYLAXIS
     Route: 065
     Dates: start: 2014
  14. VENETOCLAX. [Suspect]
     Active Substance: VENETOCLAX
     Indication: CHRONIC LYMPHOCYTIC LEUKAEMIA RECURRENT
  15. ALLOPURINOL. [Concomitant]
     Active Substance: ALLOPURINOL
     Indication: TUMOUR LYSIS SYNDROME
     Route: 065
     Dates: start: 20160913

REACTIONS (1)
  - Skin infection [Recovered/Resolved]

NARRATIVE: CASE EVENT DATE: 20170811
